FAERS Safety Report 7665031-7 (Version None)
Quarter: 2011Q3

REPORT INFORMATION
  Report Type: 
  Country: None (occurrence: None)
  Receive Date: 20110806
  Receipt Date: 20110103
  Transmission Date: 20111222
  Serious: No
  Sender: FDA-Public Use
  Company Number: US-ABBOTT-11P-163-0694918-00

PATIENT
  Sex: Male
  Weight: 97.61 kg

DRUGS (7)
  1. AMLODIPINE [Concomitant]
     Indication: BLOOD PRESSURE
  2. WELCHOL [Concomitant]
     Indication: DEPRESSION
  3. PAXIL [Concomitant]
     Indication: DEPRESSION
  4. PRAVASTATIN [Concomitant]
     Indication: PRODUCT USED FOR UNKNOWN INDICATION
  5. ATENOLOL [Concomitant]
     Indication: BLOOD PRESSURE
  6. NIASPAN [Suspect]
     Indication: BLOOD CHOLESTEROL
     Dates: end: 20101230
  7. NIASPAN [Suspect]
     Indication: BLOOD TRIGLYCERIDES INCREASED

REACTIONS (3)
  - ARTHRALGIA [None]
  - MUSCULAR WEAKNESS [None]
  - MYALGIA [None]
